FAERS Safety Report 10041552 (Version 2)
Quarter: 2014Q1

REPORT INFORMATION
  Report Type: Report from Study
  Country: JP (occurrence: JP)
  Receive Date: 20140327
  Receipt Date: 20140327
  Transmission Date: 20141002
  Serious: Yes (Hospitalization)
  Sender: FDA-Public Use
  Company Number: JP-NOVOPROD-402787

PATIENT
  Age: 70 Year
  Sex: Male
  Weight: 77 kg

DRUGS (8)
  1. LIRAGLUTIDE FLEXPEN [Suspect]
     Indication: TYPE 2 DIABETES MELLITUS
     Dosage: 0.3 MG, QD /MORNING
     Route: 058
     Dates: start: 20110829, end: 20110904
  2. LIRAGLUTIDE FLEXPEN [Suspect]
     Dosage: 0.6 MG, QD
     Route: 058
     Dates: start: 20110905, end: 20110911
  3. LIRAGLUTIDE FLEXPEN [Suspect]
     Dosage: 0.9 MG, QD
     Route: 058
     Dates: start: 20110912, end: 20121125
  4. EUGLUCON [Concomitant]
     Indication: TYPE 2 DIABETES MELLITUS
     Dosage: 5 MG QD (PER DAY)
     Route: 065
     Dates: start: 20110829, end: 20121028
  5. EUGLUCON [Concomitant]
     Dosage: 2.5 MG, UNK
     Dates: start: 20121029, end: 20121125
  6. BAYASPIRIN [Concomitant]
     Indication: TYPE 2 DIABETES MELLITUS
     Dosage: UNK
     Route: 065
  7. HERBESSER R [Concomitant]
     Dosage: UNK
     Route: 065
  8. MEVALOTIN [Concomitant]
     Dosage: UNK
     Route: 065

REACTIONS (1)
  - Gastric cancer stage I [Recovering/Resolving]
